FAERS Safety Report 16248043 (Version 2)
Quarter: 2020Q3

REPORT INFORMATION
  Report Type: Spontaneous
  Country: US (occurrence: US)
  Receive Date: 20190428
  Receipt Date: 20200731
  Transmission Date: 20201102
  Serious: Yes (Death, Hospitalization)
  Sender: FDA-Public Use
  Company Number: US-JNJFOC-20190422387

PATIENT
  Age: 66 Year
  Sex: Male

DRUGS (1)
  1. XARELTO [Suspect]
     Active Substance: RIVAROXABAN
     Indication: DEEP VEIN THROMBOSIS
     Dosage: THERAPY END DATE WAS /AUG/2018
     Route: 048
     Dates: start: 201701

REACTIONS (1)
  - Cerebellar haemorrhage [Fatal]

NARRATIVE: CASE EVENT DATE: 20180805
